FAERS Safety Report 5380591-7 (Version None)
Quarter: 2007Q3

REPORT INFORMATION
  Report Type: 
  Country: None (occurrence: None)
  Receive Date: 20070706
  Receipt Date: 20070629
  Transmission Date: 20080115
  Serious: Yes (Other)
  Sender: FDA-Public Use
  Company Number: JP-ASTRAZENECA-2007AP03783

PATIENT
  Age: 58 Year
  Sex: Male

DRUGS (4)
  1. PROPOFOL [Suspect]
     Indication: INDUCTION OF ANAESTHESIA
     Route: 042
  2. FENTANYL CITRATE [Concomitant]
     Indication: INDUCTION OF ANAESTHESIA
  3. VECURONIUM BROMIDE [Concomitant]
     Indication: INDUCTION OF ANAESTHESIA
     Route: 042
  4. SEVOFLURANE [Concomitant]
     Indication: MAINTENANCE OF ANAESTHESIA
     Route: 055

REACTIONS (3)
  - ACUTE PULMONARY OEDEMA [None]
  - GENERALISED ERYTHEMA [None]
  - LUNG DISORDER [None]
